FAERS Safety Report 7921747-6 (Version None)
Quarter: 2011Q4

REPORT INFORMATION
  Report Type: 
  Country: None (occurrence: None)
  Receive Date: 20111117
  Receipt Date: 20111110
  Transmission Date: 20120403
  Serious: Yes (Other)
  Sender: FDA-Public Use
  Company Number: US-GLAXOSMITHKLINE-A0953461A

PATIENT
  Age: 62 Year
  Sex: Female
  Weight: 72.7 kg

DRUGS (11)
  1. ABILIFY [Suspect]
     Indication: DEPRESSION
     Route: 065
  2. ZOLOFT [Suspect]
     Indication: DEPRESSION
     Route: 065
  3. REMERON [Suspect]
     Indication: DEPRESSION
     Route: 065
  4. AMBIEN [Concomitant]
     Indication: SLEEP DISORDER
     Dosage: 10MG PER DAY
  5. PAXIL [Suspect]
     Indication: DEPRESSION
     Route: 065
  6. PROZAC [Suspect]
     Indication: DEPRESSION
     Route: 065
  7. PAMELOR [Suspect]
     Indication: DEPRESSION
     Route: 065
  8. NARDIL [Suspect]
     Indication: DEPRESSION
     Dosage: 30MG TWICE PER DAY
     Route: 065
     Dates: start: 20101228
  9. CYMBALTA [Suspect]
     Indication: DEPRESSION
     Route: 065
  10. WELLBUTRIN [Suspect]
     Indication: PRODUCT USED FOR UNKNOWN INDICATION
     Route: 065
  11. PRISTIQ [Suspect]
     Indication: DEPRESSION
     Route: 065

REACTIONS (3)
  - OEDEMA PERIPHERAL [None]
  - THROMBOSIS [None]
  - DRUG INEFFECTIVE [None]
